FAERS Safety Report 25492747 (Version 2)
Quarter: 2025Q3

REPORT INFORMATION
  Report Type: Report from Study
  Country: US (occurrence: US)
  Receive Date: 20250630
  Receipt Date: 20250901
  Transmission Date: 20251021
  Serious: Yes (Other)
  Sender: TAKEDA
  Company Number: US-TAKEDA-US202005329

PATIENT
  Sex: Female

DRUGS (3)
  1. HUMAN IMMUNOGLOBULIN G\HYALURONIDASE RECOMBINANT HUMAN [Suspect]
     Active Substance: HUMAN IMMUNOGLOBULIN G\HYALURONIDASE (HUMAN RECOMBINANT)
     Indication: Immunodeficiency common variable
  2. CUVITRU [Suspect]
     Active Substance: HUMAN IMMUNOGLOBULIN G
     Indication: Immunodeficiency common variable
  3. CUVITRU [Suspect]
     Active Substance: HUMAN IMMUNOGLOBULIN G
     Indication: Primary immunodeficiency syndrome

REACTIONS (19)
  - Kidney infection [Unknown]
  - Device infusion issue [Unknown]
  - Somnolence [Unknown]
  - Inappropriate schedule of product administration [Unknown]
  - Insurance issue [Unknown]
  - Memory impairment [Unknown]
  - Muscular weakness [Unknown]
  - Oropharyngeal pain [Unknown]
  - Infusion site mass [Unknown]
  - Migraine [Not Recovered/Not Resolved]
  - Hypersensitivity [Unknown]
  - Headache [Unknown]
  - Back pain [Unknown]
  - COVID-19 [Recovering/Resolving]
  - Illness [Unknown]
  - Wrong technique in product usage process [Unknown]
  - Abdominal discomfort [Unknown]
  - Malaise [Unknown]
  - Fatigue [Unknown]
